FAERS Safety Report 21685047 (Version 2)
Quarter: 2022Q4

REPORT INFORMATION
  Report Type: Other
  Country: GB (occurrence: GB)
  Receive Date: 20221206
  Receipt Date: 20221206
  Transmission Date: 20230113
  Serious: No
  Sender: FDA-Public Use
  Company Number: GB-MHRA-MED-202211191022158920-SWHRT

PATIENT
  Age: 69 Year
  Sex: Male
  Weight: 89 kg

DRUGS (1)
  1. SERTRALINE [Suspect]
     Active Substance: SERTRALINE HYDROCHLORIDE
     Indication: Depression
     Dosage: 50 MG
     Route: 065

REACTIONS (4)
  - Night sweats [Not Recovered/Not Resolved]
  - Ejaculation failure [Not Recovered/Not Resolved]
  - Faeces soft [Not Recovered/Not Resolved]
  - Flatulence [Not Recovered/Not Resolved]
